FAERS Safety Report 24408080 (Version 1)
Quarter: 2024Q4

REPORT INFORMATION
  Report Type: Spontaneous
  Country: CN (occurrence: CN)
  Receive Date: 20241007
  Receipt Date: 20241007
  Transmission Date: 20250115
  Serious: Yes (Other)
  Sender: SANDOZ
  Company Number: CN-SANDOZ-SDZ2024CN084376

PATIENT
  Age: 64 Year
  Sex: Male
  Weight: 56 kg

DRUGS (2)
  1. VORICONAZOLE [Suspect]
     Active Substance: VORICONAZOLE
     Indication: Pneumonia fungal
     Dosage: 0.2 G, BID
     Route: 048
     Dates: start: 20240914, end: 20240922
  2. VORICONAZOLE [Suspect]
     Active Substance: VORICONAZOLE
     Dosage: 0.4 G
     Route: 048

REACTIONS (1)
  - Myocardial necrosis marker increased [Not Recovered/Not Resolved]

NARRATIVE: CASE EVENT DATE: 20240922
